FAERS Safety Report 25924539 (Version 1)
Quarter: 2025Q4

REPORT INFORMATION
  Report Type: Spontaneous
  Country: CN (occurrence: CN)
  Receive Date: 20251015
  Receipt Date: 20251015
  Transmission Date: 20260117
  Serious: Yes (Other)
  Sender: PFIZER
  Company Number: CN-MLMSERVICE-20251002-PI666908-00270-1

PATIENT
  Age: 56 Year
  Sex: Male

DRUGS (2)
  1. METHYLPREDNISOLONE SODIUM SUCCINATE [Suspect]
     Active Substance: METHYLPREDNISOLONE SODIUM SUCCINATE
     Indication: Encephalitis autoimmune
     Dosage: UNK (INTRAVENOUS METHYLPREDNISOLONE PULSE (IVMP))
     Route: 042
  2. METHYLPREDNISOLONE SODIUM SUCCINATE [Suspect]
     Active Substance: METHYLPREDNISOLONE SODIUM SUCCINATE
     Indication: Cognitive disorder

REACTIONS (4)
  - Upper gastrointestinal haemorrhage [Unknown]
  - Deep vein thrombosis [Unknown]
  - Peripheral artery stenosis [Unknown]
  - Off label use [Unknown]
